FAERS Safety Report 19598768 (Version 1)
Quarter: 2021Q3

REPORT INFORMATION
  Report Type: Spontaneous
  Country: BR (occurrence: BR)
  Receive Date: 20210722
  Receipt Date: 20210722
  Transmission Date: 20211014
  Serious: Yes (Life-Threatening, Other)
  Sender: FDA-Public Use
  Company Number: NVSC2021BR164761

PATIENT
  Age: 55 Year
  Sex: Female

DRUGS (2)
  1. FORASEQ [Suspect]
     Active Substance: BUDESONIDE\FORMOTEROL FUMARATE
     Indication: EMPHYSEMA
     Dosage: UNK (12/400 MCG)
     Route: 065
     Dates: start: 200205
  2. ULTIBRO [Suspect]
     Active Substance: GLYCOPYRRONIUM\INDACATEROL
     Indication: PRODUCT USED FOR UNKNOWN INDICATION
     Route: 065

REACTIONS (9)
  - Coma [Unknown]
  - Cough [Unknown]
  - Drug ineffective [Unknown]
  - Hypotension [Unknown]
  - White blood cell count decreased [Unknown]
  - Blood glucose decreased [Unknown]
  - Drug dependence [Unknown]
  - Liver abscess [Unknown]
  - Dyspnoea [Unknown]

NARRATIVE: CASE EVENT DATE: 201812
